FAERS Safety Report 5862146-0 (Version None)
Quarter: 2008Q3

REPORT INFORMATION
  Report Type: 
  Country: None (occurrence: None)
  Receive Date: 20080828
  Receipt Date: 20080331
  Transmission Date: 20090109
  Serious: No
  Sender: FDA-Public Use
  Company Number: A0721940A

PATIENT
  Sex: Female

DRUGS (1)
  1. ACYCLOVIR [Suspect]
     Indication: GENITAL HERPES
     Dosage: 400MG UNKNOWN
     Route: 048

REACTIONS (5)
  - DRUG INEFFECTIVE [None]
  - EMOTIONAL DISTRESS [None]
  - GENITAL HERPES [None]
  - ORAL HERPES [None]
  - PAIN [None]
